FAERS Safety Report 18699262 (Version 5)
Quarter: 2022Q1

REPORT INFORMATION
  Report Type: Spontaneous
  Country: US (occurrence: US)
  Receive Date: 20210104
  Receipt Date: 20220308
  Transmission Date: 20220423
  Serious: No
  Sender: FDA-Public Use
  Company Number: US-PFIZER INC-2020407899

PATIENT
  Age: 55 Year
  Sex: Female

DRUGS (2)
  1. XELJANZ [Suspect]
     Active Substance: TOFACITINIB CITRATE
     Indication: Rheumatoid arthritis
     Dosage: 5 MG, 2X/DAY
     Route: 048
     Dates: start: 20200925
  2. XELJANZ [Suspect]
     Active Substance: TOFACITINIB CITRATE
     Dosage: 5 MG, 2X/DAY
     Route: 048
     Dates: start: 20210414, end: 20210711

REACTIONS (11)
  - Drug ineffective [Unknown]
  - Urinary tract infection [Unknown]
  - Anal incontinence [Unknown]
  - Spinal osteoarthritis [Unknown]
  - Condition aggravated [Unknown]
  - Epistaxis [Unknown]
  - Sinusitis [Unknown]
  - Inflammation [Unknown]
  - Hypoaesthesia [Unknown]
  - Depressed mood [Unknown]
  - Discouragement [Unknown]

NARRATIVE: CASE EVENT DATE: 20200101
